FAERS Safety Report 7512668-1 (Version None)
Quarter: 2011Q2

REPORT INFORMATION
  Report Type: 
  Country: None (occurrence: None)
  Receive Date: 20110531
  Receipt Date: 20090316
  Transmission Date: 20111010
  Serious: Yes (Other)
  Sender: FDA-Public Use
  Company Number: US-BAYER-200915601NA

PATIENT
  Age: 54 Year
  Sex: Female
  Weight: 66 kg

DRUGS (9)
  1. ADVICOR [Concomitant]
     Dosage: 500/20
  2. TRASYLOL [Suspect]
     Indication: CORONARY REVASCULARISATION
     Dosage: 200 ML, LOADING DOSE
     Route: 042
     Dates: start: 20030609, end: 20030609
  3. TRASYLOL [Suspect]
     Dosage: 30 CC/HR INFUSION
     Route: 042
     Dates: start: 20030609, end: 20030609
  4. TRASYLOL [Suspect]
     Indication: CORONARY ARTERY BYPASS
     Dosage: 1 ML, ONCE, INITIAL TEST DOSE
     Route: 042
     Dates: start: 20030609, end: 20030609
  5. VERSED [Concomitant]
     Dosage: UNK
     Route: 042
     Dates: start: 20030609, end: 20030609
  6. VASOTEC [Concomitant]
     Dosage: 100 MG, TID
     Route: 048
  7. RELAFEN [Concomitant]
     Dosage: 500/ TWICE DAILY
     Route: 048
  8. HEPARIN [Concomitant]
     Dosage: UNK
     Route: 042
     Dates: start: 20030609, end: 20030609
  9. ATENOLOL [Concomitant]
     Dosage: 25 MG, QD
     Route: 048

REACTIONS (9)
  - UNEVALUABLE EVENT [None]
  - PAIN [None]
  - INJURY [None]
  - RENAL FAILURE [None]
  - CEREBROVASCULAR ACCIDENT [None]
  - FEAR [None]
  - DEPRESSION [None]
  - ANHEDONIA [None]
  - ANXIETY [None]
